FAERS Safety Report 8418085-4 (Version None)
Quarter: 2012Q2

REPORT INFORMATION
  Report Type: 
  Country: None (occurrence: None)
  Receive Date: 20120607
  Receipt Date: 20120530
  Transmission Date: 20120825
  Serious: Yes (Other)
  Sender: FDA-Public Use
  Company Number: US-ASTRAZENECA-2011SE32264

PATIENT
  Age: 39 Year
  Sex: Female
  Weight: 99.8 kg

DRUGS (22)
  1. NEXIUM [Suspect]
     Route: 048
     Dates: start: 20070101, end: 20100101
  2. WELLBUTRIN [Concomitant]
  3. VALTREX [Concomitant]
  4. LORAZEPAM [Concomitant]
     Indication: GENERALISED ANXIETY DISORDER
  5. LORAZEPAM [Concomitant]
     Indication: BIPOLAR DISORDER
  6. CALCIUM CITRATE [Concomitant]
  7. LATUDA [Concomitant]
     Indication: GENERALISED ANXIETY DISORDER
  8. NEXIUM [Suspect]
     Indication: GASTROOESOPHAGEAL REFLUX DISEASE
     Dosage: ONCE A DAY
     Route: 048
  9. ZOLOFT [Concomitant]
     Indication: DEPRESSION
  10. VERAPAMIL [Concomitant]
  11. NORTRYTOLINE [Concomitant]
  12. GAVISCON [Concomitant]
  13. ZOLOFT [Concomitant]
     Indication: BIPOLAR DISORDER
  14. PROZAC [Concomitant]
  15. LATUDA [Concomitant]
     Indication: DEPRESSION
  16. PREVACID [Concomitant]
  17. LIKINOPRIL [Concomitant]
  18. LATUDA [Concomitant]
     Indication: BIPOLAR DISORDER
  19. OMNIPRAZOLE [Concomitant]
  20. ZOLOFT [Concomitant]
     Indication: GENERALISED ANXIETY DISORDER
  21. LORAZEPAM [Concomitant]
     Indication: DEPRESSION
  22. BLACK COHOSH ROOT [Concomitant]

REACTIONS (5)
  - OSTEOPOROSIS [None]
  - PAIN IN EXTREMITY [None]
  - FOOT FRACTURE [None]
  - PLANTAR FASCIITIS [None]
  - STRESS FRACTURE [None]
